FAERS Safety Report 17587389 (Version 3)
Quarter: 2020Q2

REPORT INFORMATION
  Report Type: Spontaneous
  Country: GB (occurrence: GB)
  Receive Date: 20200326
  Receipt Date: 20200408
  Transmission Date: 20200713
  Serious: Yes (Hospitalization, Other)
  Sender: FDA-Public Use
  Company Number: GB-ACTELION-A-CH2010-37383

PATIENT
  Age: 55 Year
  Sex: Female

DRUGS (12)
  1. TRACLEER [Suspect]
     Active Substance: BOSENTAN
     Indication: PRINZMETAL ANGINA
     Dosage: 125 MG, OD
     Route: 048
  2. ISOSORBIDE MONONITRATE. [Concomitant]
     Active Substance: ISOSORBIDE MONONITRATE
  3. ASPIRIN. [Concomitant]
     Active Substance: ASPIRIN
  4. GLYCERYL TRINITRATE [Concomitant]
     Active Substance: NITROGLYCERIN
     Route: 060
  5. NICORANDIL [Concomitant]
     Active Substance: NICORANDIL
  6. BISOPROLOL [Concomitant]
     Active Substance: BISOPROLOL
  7. TRACLEER [Suspect]
     Active Substance: BOSENTAN
     Dosage: 125 MG, BID
     Route: 048
  8. TRACLEER [Suspect]
     Active Substance: BOSENTAN
     Dosage: UNK
     Route: 048
     Dates: start: 2010
  9. DOXAZOSIN [Concomitant]
     Active Substance: DOXAZOSIN MESYLATE
  10. TRACLEER [Suspect]
     Active Substance: BOSENTAN
     Dosage: 62.5 MG, BID
     Route: 048
  11. TRACLEER [Suspect]
     Active Substance: BOSENTAN
     Dosage: 125 MG, BID
     Route: 048
  12. DILTIAZEM. [Concomitant]
     Active Substance: DILTIAZEM

REACTIONS (6)
  - Mechanical ventilation [Recovered/Resolved]
  - Cardioversion [Recovered/Resolved]
  - Electrocardiogram ST segment elevation [Unknown]
  - Resuscitation [Recovered/Resolved]
  - Inappropriate schedule of product administration [Recovered/Resolved]
  - Ventricular fibrillation [Recovered/Resolved]
